FAERS Safety Report 23549425 (Version 2)
Quarter: 2024Q1

REPORT INFORMATION
  Report Type: Spontaneous
  Country: US (occurrence: US)
  Receive Date: 20240221
  Receipt Date: 20240308
  Transmission Date: 20240410
  Serious: Yes (Hospitalization, Other)
  Sender: FDA-Public Use
  Company Number: US-TEVA-VS-3158470

PATIENT
  Age: 33 Year
  Sex: Female

DRUGS (3)
  1. GEMCITABINE [Suspect]
     Active Substance: GEMCITABINE
     Indication: Cholangiocarcinoma
     Route: 065
     Dates: start: 20210107, end: 202102
  2. PEMIGATINIB [Suspect]
     Active Substance: PEMIGATINIB
     Indication: Cholangiocarcinoma
     Dosage: ADMINISTERED FOR DAYS?1 14 OF A 21-DAY CYCLE
     Route: 065
     Dates: start: 202102
  3. CISPLATIN [Suspect]
     Active Substance: CISPLATIN
     Indication: Cholangiocarcinoma
     Route: 065
     Dates: start: 20210107, end: 202102

REACTIONS (4)
  - Escherichia urinary tract infection [Unknown]
  - Drug resistance [Unknown]
  - Staphylococcal bacteraemia [Unknown]
  - Pneumonia [Unknown]

NARRATIVE: CASE EVENT DATE: 20210101
